FAERS Safety Report 22116944 (Version 1)
Quarter: 2023Q1

REPORT INFORMATION
  Report Type: Report from Study
  Country: ES (occurrence: ES)
  Receive Date: 20230320
  Receipt Date: 20230320
  Transmission Date: 20230418
  Serious: Yes (Other)
  Sender: FDA-Public Use
  Company Number: ES-PFIZER INC-2020448113

PATIENT

DRUGS (2)
  1. PACLITAXEL [Suspect]
     Active Substance: PACLITAXEL
     Indication: Neoplasm
     Dosage: 80 MG/M2, WEEKLY
     Route: 042
  2. ALPELISIB [Suspect]
     Active Substance: ALPELISIB
     Indication: Neoplasm
     Dosage: 150 MG, 1X/DAY
     Route: 048

REACTIONS (2)
  - Gamma-glutamyltransferase increased [Unknown]
  - Neutropenia [Unknown]
